FAERS Safety Report 6032078-6 (Version None)
Quarter: 2008Q4

REPORT INFORMATION
  Report Type: 
  Country: None (occurrence: None)
  Receive Date: 20081222
  Receipt Date: 20081111
  Transmission Date: 20090506
  Serious: No
  Sender: FDA-Public Use
  Company Number: US-WYE-H06818108

PATIENT
  Age: 67 Year
  Sex: Female

DRUGS (5)
  1. PRISTIQ [Suspect]
     Indication: DEPRESSION
     Dosage: 50 MG 1X PER 1 DAY, ORAL
     Route: 048
     Dates: start: 20081018
  2. BUPROPION HCL [Concomitant]
  3. HYDROCODONE (HYDROCODONE) [Concomitant]
  4. SIMVASTATIN [Concomitant]
  5. DIOVAN [Concomitant]

REACTIONS (11)
  - BALANCE DISORDER [None]
  - CONFUSIONAL STATE [None]
  - COORDINATION ABNORMAL [None]
  - FALL [None]
  - HEAD INJURY [None]
  - HEART RATE INCREASED [None]
  - HYPERHIDROSIS [None]
  - INCREASED TENDENCY TO BRUISE [None]
  - INSOMNIA [None]
  - MUSCULAR WEAKNESS [None]
  - RESTLESSNESS [None]
